FAERS Safety Report 7409755-5 (Version None)
Quarter: 2011Q2

REPORT INFORMATION
  Report Type: 
  Country: None (occurrence: None)
  Receive Date: 20110412
  Receipt Date: 20110321
  Transmission Date: 20111010
  Serious: Yes (Other)
  Sender: FDA-Public Use
  Company Number: US-BAYER-201022277NA

PATIENT
  Age: 38 Year
  Sex: Female
  Weight: 82 kg

DRUGS (8)
  1. YASMIN [Suspect]
     Indication: ORAL CONTRACEPTION
     Route: 048
     Dates: start: 20051201, end: 20080301
  2. ACTONEL [Concomitant]
     Dosage: 75 MG, Q2WK
     Route: 048
  3. ORENCIA [Concomitant]
     Dosage: UNK UNK, Q1MON
     Route: 042
  4. PREDNISONE [Concomitant]
     Dosage: 8 MG, QD
     Route: 048
  5. METOPROLOL TARTRATE [Concomitant]
     Dosage: 200 MG, QD
     Route: 048
  6. AMITRIPTYLINE HCL [Concomitant]
     Dosage: 10 MG, BID
     Route: 048
  7. YAZ [Suspect]
     Indication: PRODUCT USED FOR UNKNOWN INDICATION
     Route: 048
     Dates: start: 20051201, end: 20080301
  8. LASIX [Concomitant]
     Route: 048

REACTIONS (1)
  - MYOCARDIAL INFARCTION [None]
